FAERS Safety Report 6085545-3 (Version None)
Quarter: 2009Q1

REPORT INFORMATION
  Report Type: 
  Country: None (occurrence: None)
  Receive Date: 20090220
  Receipt Date: 20090210
  Transmission Date: 20090719
  Serious: Yes (Hospitalization, Other)
  Sender: FDA-Public Use
  Company Number: US-PFIZER INC-2009164435

PATIENT
  Sex: Female
  Weight: 104 kg

DRUGS (2)
  1. DEPO-PROVERA [Suspect]
     Indication: OFF LABEL USE
     Dosage: 150MG,  EVERY 3 MONTHS;
     Dates: start: 20080522, end: 20080101
  2. DEPO-PROVERA [Suspect]
     Indication: MENSTRUAL DISCOMFORT

REACTIONS (7)
  - FOOT FRACTURE [None]
  - HEADACHE [None]
  - HYPOAESTHESIA [None]
  - NERVOUSNESS [None]
  - PARANOIA [None]
  - PULMONARY THROMBOSIS [None]
  - THROMBOSIS [None]
